FAERS Safety Report 4601544-X (Version None)
Quarter: 2005Q1

REPORT INFORMATION
  Report Type: 
  Country: None (occurrence: None)
  Receive Date: 20050127
  Receipt Date: 20040428
  Transmission Date: 20050727
  Serious: Yes (Life-Threatening)
  Sender: FDA-Public Use
  Company Number: 200412722US

PATIENT
  Age: 70 Year
  Sex: Male

DRUGS (3)
  1. AMARYL [Suspect]
     Indication: DIABETES MELLITUS
     Dosage: 2 MG BID PO
     Route: 048
  2. AMARYL [Suspect]
     Indication: DIABETES MELLITUS
     Dosage: 4 MG ONCE
  3. METFORMIN HCL [Suspect]
     Indication: DIABETES MELLITUS
     Dosage: 500 MG BID PO
     Route: 048

REACTIONS (1)
  - HYPOGLYCAEMIA [None]
